FAERS Safety Report 17758675 (Version 2)
Quarter: 2020Q2

REPORT INFORMATION
  Report Type: Spontaneous
  Country: FR (occurrence: FR)
  Receive Date: 20200508
  Receipt Date: 20200601
  Transmission Date: 20200714
  Serious: Yes (Other)
  Sender: FDA-Public Use
  Company Number: FR-ROCHE-2595160

PATIENT
  Age: 87 Year
  Sex: Male
  Weight: 64 kg

DRUGS (3)
  1. ROACTEMRA [Suspect]
     Active Substance: TOCILIZUMAB
     Dosage: 480MG= FULL THEORETICAL DOSE, INFUSION STOPPED AFTER 8MIN
     Route: 042
     Dates: start: 20200429, end: 20200429
  2. TAZOCILLINE [Concomitant]
     Active Substance: PIPERACILLIN SODIUM\TAZOBACTAM SODIUM
  3. ROACTEMRA [Suspect]
     Active Substance: TOCILIZUMAB
     Indication: COVID-19 PNEUMONIA
     Dosage: 400MG= FULL THEORETICAL DOSE, INFUSION STOPPED AFTER 5MIN
     Route: 042
     Dates: start: 20200429, end: 20200429

REACTIONS (1)
  - Seizure [Recovered/Resolved]

NARRATIVE: CASE EVENT DATE: 20200429
